FAERS Safety Report 19717647 (Version 2)
Quarter: 2021Q4

REPORT INFORMATION
  Report Type: Report from Study
  Country: US (occurrence: US)
  Receive Date: 20210819
  Receipt Date: 20211012
  Transmission Date: 20220303
  Serious: Yes (Death, Hospitalization, Other)
  Sender: FDA-Public Use
  Company Number: US-INSMED, INC.-2021-09009-US

PATIENT
  Age: 72 Year
  Sex: Female

DRUGS (2)
  1. ARIKAYCE [Suspect]
     Active Substance: AMIKACIN
     Indication: Mycobacterium avium complex infection
     Dosage: 590 MILLIGRAM, QD
     Route: 055
     Dates: start: 20210709, end: 20210715
  2. ARIKAYCE [Suspect]
     Active Substance: AMIKACIN
     Dosage: 590 MILLIGRAM, QD
     Route: 055
     Dates: start: 20210723, end: 20210807

REACTIONS (11)
  - Hospitalisation [Unknown]
  - Acute respiratory distress syndrome [Fatal]
  - Lung lobectomy [Unknown]
  - Pneumonia [Not Recovered/Not Resolved]
  - Hypersensitivity pneumonitis [Unknown]
  - Eye pruritus [Recovering/Resolving]
  - Lung disorder [Unknown]
  - Pruritus [Recovering/Resolving]
  - Dysphonia [Recovering/Resolving]
  - Therapy interrupted [Unknown]
  - Product dose omission issue [Unknown]

NARRATIVE: CASE EVENT DATE: 20210101
